FAERS Safety Report 12981373 (Version 1)
Quarter: 2016Q4

REPORT INFORMATION
  Report Type: Spontaneous
  Country: US (occurrence: US)
  Receive Date: 20161129
  Receipt Date: 20161129
  Transmission Date: 20170207
  Serious: Yes (Hospitalization)
  Sender: FDA-Public Use
  Company Number: US-JNJCP-30000359538

PATIENT
  Sex: Female
  Weight: 59 kg

DRUGS (1)
  1. AVEENO CLEAR COMPLEXION DAILY CLEANSING [Suspect]
     Active Substance: SALICYLIC ACID
     Indication: ACNE
     Dosage: ONE PAD TWO TIMES DAILY
     Route: 061
     Dates: start: 20161016, end: 20161017

REACTIONS (7)
  - Application site papules [Recovered/Resolved]
  - Anaemia [Recovered/Resolved]
  - Internal haemorrhage [Recovered/Resolved]
  - Product physical issue [Unknown]
  - Application site burn [Recovered/Resolved]
  - Product tampering [Unknown]
  - Application site pruritus [Recovered/Resolved]

NARRATIVE: CASE EVENT DATE: 2016
